FAERS Safety Report 12074180 (Version 1)
Quarter: 2016Q1

REPORT INFORMATION
  Report Type: Spontaneous
  Country: US (occurrence: US)
  Receive Date: 20160212
  Receipt Date: 20160212
  Transmission Date: 20160526
  Serious: Yes (Disabling)
  Sender: FDA-Public Use
  Company Number: US-PRESTIGE BRANDS -1047749

PATIENT
  Age: 24 Year
  Sex: Female

DRUGS (1)
  1. DEBROX [Suspect]
     Active Substance: CARBAMIDE PEROXIDE
     Indication: CERUMEN REMOVAL
     Route: 001
     Dates: start: 20160116, end: 20160116

REACTIONS (4)
  - Product use issue [None]
  - Condition aggravated [None]
  - Deafness [Not Recovered/Not Resolved]
  - Ear pain [Unknown]

NARRATIVE: CASE EVENT DATE: 20160116
